FAERS Safety Report 5643196-6 (Version None)
Quarter: 2008Q1

REPORT INFORMATION
  Report Type: 
  Country: None (occurrence: None)
  Receive Date: 20080228
  Receipt Date: 20080218
  Transmission Date: 20080703
  Serious: Yes (Other)
  Sender: FDA-Public Use
  Company Number: GB-ABBOTT-08P-167-0438906-00

PATIENT

DRUGS (2)
  1. EPILIM [Suspect]
     Indication: CONVULSION
  2. EPILIM [Suspect]
     Indication: BRAIN NEOPLASM

REACTIONS (4)
  - BLOOD ALKALINE PHOSPHATASE INCREASED [None]
  - GAMMA-GLUTAMYLTRANSFERASE INCREASED [None]
  - MIXED LIVER INJURY [None]
  - TRANSAMINASES INCREASED [None]
